FAERS Safety Report 8617052 (Version 2)
Quarter: 2014Q1

REPORT INFORMATION
  Report Type: Spontaneous
  Country: US (occurrence: None)
  Receive Date: 20120323
  Receipt Date: 20130305
  Transmission Date: 20141002
  Serious: Yes (Hospitalization, Other)
  Sender: FDA-Public Use
  Company Number: 163-21880-11122516

PATIENT
  Age: 90 Year
  Sex: Female

DRUGS (9)
  1. REVLIMID [Suspect]
     Indication: PLASMA CELL MYELOMA
     Dosage: 1 IN 1 D
     Route: 048
     Dates: start: 20111120
  2. DEXAMETHASONE (DEXAMETHASONE) [Concomitant]
  3. LISINOPRIL (LISINOPRIL) [Concomitant]
  4. TRAMADOL HCL [Concomitant]
  5. OXYCODONE HYDROCHLORIDE [Concomitant]
  6. OMEPRAZOLE [Concomitant]
  7. DETROL LA [Concomitant]
  8. ROLAIDS [Concomitant]
  9. ONDANSETRON HCL (ONDANSETRON HYDROCHLORIDE) [Concomitant]

REACTIONS (2)
  - Hallucination [None]
  - Urinary tract infection [None]
